FAERS Safety Report 22657688 (Version 7)
Quarter: 2023Q4

REPORT INFORMATION
  Report Type: Report from Study
  Country: JP (occurrence: JP)
  Receive Date: 20230630
  Receipt Date: 20231027
  Transmission Date: 20240110
  Serious: Yes (Hospitalization)
  Sender: FDA-Public Use
  Company Number: JP-002147023-NVSC2023JP148084

PATIENT
  Age: 71 Year
  Sex: Male
  Weight: 89.9 kg

DRUGS (4)
  1. PLUVICTO [Suspect]
     Active Substance: LUTETIUM LU-177 VIPIVOTIDE TETRAXETAN
     Indication: Prostate cancer metastatic
     Dosage: 7250 MBQ, ONCE/SINGLE
     Route: 042
     Dates: start: 20230613
  2. LOCAMETZ [Suspect]
     Active Substance: PSMA-HBED-CC
     Indication: Prostate cancer metastatic
     Dosage: 181 MBQ, ONCE/SINGLE
     Route: 042
     Dates: start: 20230516
  3. ENZALUTAMIDE [Suspect]
     Active Substance: ENZALUTAMIDE
     Indication: Product used for unknown indication
     Dosage: 160 MG, ONCE
     Route: 065
     Dates: start: 20230516
  4. LEUPROLIDE [Concomitant]
     Active Substance: LEUPROLIDE
     Indication: Product used for unknown indication
     Dosage: 11.25 MG, EVERY 12 WEEKS
     Route: 065
     Dates: start: 20230516

REACTIONS (1)
  - Liver disorder [Recovering/Resolving]

NARRATIVE: CASE EVENT DATE: 20230629
